FAERS Safety Report 21336933 (Version 1)
Quarter: 2022Q3

REPORT INFORMATION
  Report Type: Report from Study
  Country: None (occurrence: DE)
  Receive Date: 20220915
  Receipt Date: 20220915
  Transmission Date: 20221027
  Serious: Yes (Hospitalization, Other)
  Sender: FDA-Public Use
  Company Number: DE-CLINUVEL INC-2132876

PATIENT
  Sex: Male

DRUGS (10)
  1. SCENESSE [Suspect]
     Active Substance: AFAMELANOTIDE
     Indication: Porphyria non-acute
     Route: 058
  2. MAGNESIUM [Concomitant]
     Active Substance: MAGNESIUM
     Route: 048
     Dates: start: 20180501
  3. METHOCARBAMOL [Concomitant]
     Active Substance: METHOCARBAMOL
     Route: 048
     Dates: start: 20180201, end: 20180214
  4. Vitagamina Vit. D 1000 [Concomitant]
     Route: 048
     Dates: start: 20210416
  5. AMBROXOL HYDROCHLORIDE [Concomitant]
     Active Substance: AMBROXOL HYDROCHLORIDE
     Route: 048
     Dates: start: 20200205
  6. IBUPROFEN [Concomitant]
     Active Substance: IBUPROFEN
     Route: 048
     Dates: start: 20150101
  7. Antibiosis [Concomitant]
     Dates: start: 20210830
  8. Johnson [Concomitant]
     Route: 030
     Dates: start: 20210920, end: 20210920
  9. Biontech [Concomitant]
     Dates: start: 20211213, end: 20211213
  10. Biontech [Concomitant]
     Route: 030
     Dates: start: 20220225, end: 20220225

REACTIONS (2)
  - Hepatic enzyme increased [Not Recovered/Not Resolved]
  - Hepatic cirrhosis [Not Recovered/Not Resolved]
